FAERS Safety Report 6388158-9 (Version None)
Quarter: 2009Q4

REPORT INFORMATION
  Report Type: 
  Country: None (occurrence: None)
  Receive Date: 20091005
  Receipt Date: 20090929
  Transmission Date: 20100525
  Serious: Yes (Other)
  Sender: FDA-Public Use
  Company Number: US-BAYER-200914693BCC

PATIENT
  Age: 55 Year
  Sex: Female
  Weight: 91 kg

DRUGS (2)
  1. ALEVE GEL CAPS 40CT ARTHRITIS [Suspect]
     Indication: DRUG USE FOR UNKNOWN INDICATION
     Dosage: CONSUMER TOOK 1 OR 2 ALEVE AS NEEDED
     Route: 048
  2. STOOL SOFTENER [Concomitant]
     Route: 065
     Dates: start: 20090923

REACTIONS (1)
  - HAEMATOCHEZIA [None]
